FAERS Safety Report 9571845 (Version 1)
Quarter: 2013Q4

REPORT INFORMATION
  Report Type: Spontaneous
  Country: US (occurrence: US)
  Receive Date: 20131001
  Receipt Date: 20131001
  Transmission Date: 20140711
  Serious: Yes (Other)
  Sender: FDA-Public Use
  Company Number: US-PFIZER INC-2013279743

PATIENT
  Age: 53 Year
  Sex: Female
  Weight: 108 kg

DRUGS (1)
  1. LIPITOR [Suspect]
     Indication: DIABETES MELLITUS
     Dosage: UNK

REACTIONS (5)
  - Diabetes mellitus [Unknown]
  - Off label use [Unknown]
  - Local swelling [Unknown]
  - Paraesthesia [Unknown]
  - Fatigue [Unknown]
